FAERS Safety Report 4938580-X (Version None)
Quarter: 2006Q1

REPORT INFORMATION
  Report Type: 
  Country: None (occurrence: None)
  Receive Date: 20060309
  Receipt Date: 20060216
  Transmission Date: 20060701
  Serious: Yes (Hospitalization)
  Sender: FDA-Public Use
  Company Number: AU-BRISTOL-MYERS SQUIBB COMPANY-13309067

PATIENT
  Age: 47 Year
  Sex: Male

DRUGS (2)
  1. CETUXIMAB [Suspect]
     Indication: GASTROOESOPHAGEAL CANCER
     Dosage: ALSO ADMINISTERED ON 02-FEB AND 09-FEB-2006.
     Route: 042
     Dates: start: 20060127
  2. DOCETAXEL [Suspect]
     Indication: GASTROOESOPHAGEAL CANCER
     Dosage: ALSO ADMINISTERED 02-FEB-2006.
     Dates: start: 20060127

REACTIONS (1)
  - MOUTH ULCERATION [None]
